FAERS Safety Report 8401410-8 (Version None)
Quarter: 2012Q2

REPORT INFORMATION
  Report Type: 
  Country: None (occurrence: None)
  Receive Date: 20120525
  Receipt Date: 20120514
  Transmission Date: 20120825
  Serious: Yes (Death, Hospitalization, Other)
  Sender: FDA-Public Use
  Company Number: 2012MA006118

PATIENT
  Age: 36 Year
  Sex: Female

DRUGS (8)
  1. MOCLOBEMIDE (MOCLOBEMIDE) [Suspect]
     Dosage: 4500 MG;1X
  2. ALPRAZOLAM [Suspect]
     Dosage: 15 MG;1X
  3. LORAZEPAM [Suspect]
     Dosage: 10 MG;1X
  4. ESTAZOLAM [Suspect]
     Dosage: 20 MG;1X
  5. MIDAZOLAM HCL [Suspect]
     Dosage: 75 MG;1X
  6. BROMAZEPAM (BROMAZEPAM) [Suspect]
     Dosage: 60 MG;1X
  7. FLUOXETINE HYDROCHLORIDE [Suspect]
     Dosage: 200 MG;1X
  8. ALPRAZOLAM [Suspect]
     Dosage: 300 MG;1X

REACTIONS (32)
  - DISSEMINATED INTRAVASCULAR COAGULATION [None]
  - ELECTROCARDIOGRAM QRS COMPLEX PROLONGED [None]
  - ELECTROCARDIOGRAM QT PROLONGED [None]
  - MOUTH HAEMORRHAGE [None]
  - CIRCULATORY COLLAPSE [None]
  - MUSCLE TWITCHING [None]
  - LEUKOCYTOSIS [None]
  - BLOOD PRESSURE DECREASED [None]
  - ECCHYMOSIS [None]
  - VENTRICULAR ARRHYTHMIA [None]
  - HYPERTONIA [None]
  - THROMBOCYTOPENIA [None]
  - RHABDOMYOLYSIS [None]
  - HYPOTENSION [None]
  - RENAL FAILURE [None]
  - RESPIRATORY FAILURE [None]
  - MUSCLE RIGIDITY [None]
  - SHIFT TO THE LEFT [None]
  - BLOOD GLUCOSE INCREASED [None]
  - COMA [None]
  - MYDRIASIS [None]
  - HYPERREFLEXIA [None]
  - TOXICITY TO VARIOUS AGENTS [None]
  - BRADYCARDIA [None]
  - HYPERTHERMIA [None]
  - HYPERHIDROSIS [None]
  - OXYGEN SATURATION DECREASED [None]
  - EXTENSOR PLANTAR RESPONSE [None]
  - SINUS TACHYCARDIA [None]
  - GENERAL PHYSICAL HEALTH DETERIORATION [None]
  - TREMOR [None]
  - INTENTIONAL DRUG MISUSE [None]
